FAERS Safety Report 6388627-1 (Version None)
Quarter: 2009Q4

REPORT INFORMATION
  Report Type: 
  Country: None (occurrence: None)
  Receive Date: 20091005
  Receipt Date: 20090925
  Transmission Date: 20100525
  Serious: Yes (Hospitalization)
  Sender: FDA-Public Use
  Company Number: TW-ASTRAZENECA-2009SE13447

PATIENT
  Age: 50 Year
  Sex: Female

DRUGS (1)
  1. FASLODEX [Suspect]
     Indication: BREAST CANCER
     Dosage: 500 MG 2 SITES OF HER BUTTOCK
     Route: 030
     Dates: start: 20090831, end: 20090831

REACTIONS (7)
  - CELLULITIS [None]
  - CULTURE WOUND POSITIVE [None]
  - INJECTION SITE REACTION [None]
  - INJECTION SITE SWELLING [None]
  - SKIN NECROSIS [None]
  - STAPHYLOCOCCAL INFECTION [None]
  - WOUND NECROSIS [None]
